FAERS Safety Report 10736708 (Version 1)
Quarter: 2015Q1

REPORT INFORMATION
  Report Type: Spontaneous
  Country: IT (occurrence: None)
  Receive Date: 20150122
  Receipt Date: 20150122
  Transmission Date: 20150721
  Serious: Yes (Hospitalization)
  Sender: FDA-Public Use
  Company Number: SP08864

PATIENT
  Age: 61 Year
  Sex: Male

DRUGS (1)
  1. XIFAXAN [Suspect]
     Active Substance: RIFAXIMIN
     Indication: GASTROENTERITIS
     Dosage: 400MG (400MG, 1 IN 1) ORAL
     Route: 048
     Dates: start: 20140219, end: 20140222

REACTIONS (3)
  - Cluster headache [None]
  - Diarrhoea [None]
  - Abdominal pain [None]

NARRATIVE: CASE EVENT DATE: 20140222
